FAERS Safety Report 13294016 (Version 1)
Quarter: 2017Q1

REPORT INFORMATION
  Report Type: Spontaneous
  Country: NO (occurrence: NO)
  Receive Date: 20170303
  Receipt Date: 20170303
  Transmission Date: 20170428
  Serious: Yes (Hospitalization)
  Sender: FDA-Public Use
  Company Number: NO-PURDUE-GBR-2017-0043847

PATIENT
  Age: 27 Year
  Sex: Female
  Weight: 53 kg

DRUGS (2)
  1. OXYCONTIN [Suspect]
     Active Substance: OXYCODONE HYDROCHLORIDE
     Indication: POSTOPERATIVE CARE
     Dosage: 1 ML, DAILY
     Route: 042
     Dates: start: 20130828, end: 20130831
  2. PARACET [Concomitant]
     Active Substance: ACETAMINOPHEN
     Route: 048

REACTIONS (5)
  - Vomiting [Recovered/Resolved]
  - Drug ineffective [Unknown]
  - Incorrect route of drug administration [Recovered/Resolved]
  - Feeling drunk [Recovered/Resolved]
  - Nausea [Recovered/Resolved]

NARRATIVE: CASE EVENT DATE: 20130828
